FAERS Safety Report 12101672 (Version 1)
Quarter: 2016Q1

REPORT INFORMATION
  Report Type: Spontaneous
  Country: US (occurrence: US)
  Receive Date: 20160222
  Receipt Date: 20160222
  Transmission Date: 20160526
  Serious: Yes (Hospitalization)
  Sender: FDA-Public Use
  Company Number: US-WATSON-2016-02790

PATIENT
  Age: 52 Year
  Sex: Female

DRUGS (1)
  1. MORPHINE SULFATE EXTENDED-RELEASE [Suspect]
     Active Substance: MORPHINE SULFATE
     Indication: PRODUCT USED FOR UNKNOWN INDICATION
     Dosage: 1 TABLET EVERY 12 HOURS
     Route: 048

REACTIONS (2)
  - Acute kidney injury [Unknown]
  - Delirium [Unknown]

NARRATIVE: CASE EVENT DATE: 20160208
